FAERS Safety Report 7414238 (Version 2)
Quarter: 2013Q1

REPORT INFORMATION
  Report Type: Spontaneous
  Country: GB (occurrence: None)
  Receive Date: 20100602
  Receipt Date: 20130314
  Transmission Date: 20140127
  Serious: Yes (Hospitalization)
  Sender: FDA-Public Use
  Company Number: 600704

PATIENT
  Age: 59 Year
  Sex: Male

DRUGS (2)
  1. CARBOPLATIN [Suspect]
     Indication: SMALL CELL LUNG CANCER
     Dosage: INTRAVENOUS (NOT OTHERWISE SPECIFIED)
     Route: 042
     Dates: start: 20100209, end: 20100315
  2. ETOPOSIDE [Suspect]
     Indication: SMALL CELL LUNG CANCER
     Dates: start: 20100209, end: 20100315

REACTIONS (2)
  - URINARY RETENTION [None]
  - DYSURIA [None]
